FAERS Safety Report 7820033-2 (Version None)
Quarter: 2011Q4

REPORT INFORMATION
  Report Type: 
  Country: None (occurrence: None)
  Receive Date: 20111013
  Receipt Date: 20111004
  Transmission Date: 20120403
  Serious: Yes (Life-Threatening, Hospitalization)
  Sender: FDA-Public Use
  Company Number: GER/UKI/11/0021427

PATIENT
  Age: 65 Year
  Sex: Male

DRUGS (6)
  1. ENOXAPARIN SODIUM [Suspect]
     Indication: MYOCARDIAL INFARCTION
     Dosage: 1 MG/KG, 2 IN 1 D
  2. ENOXAPARIN SODIUM [Suspect]
     Indication: VASCULAR GRAFT OCCLUSION
     Dosage: 1 MG/KG, 2 IN 1 D
  3. CLOPIDOGREL [Suspect]
     Indication: MYOCARDIAL INFARCTION
     Dosage: 300 MG, ORAL; 75 MG, 1 IN 1 D, ORAL
     Route: 048
  4. CLOPIDOGREL [Suspect]
     Indication: VASCULAR GRAFT OCCLUSION
     Dosage: 300 MG, ORAL; 75 MG, 1 IN 1 D, ORAL
     Route: 048
  5. ASPIRIN [Suspect]
     Indication: VASCULAR GRAFT OCCLUSION
     Dosage: ORAL
     Route: 048
  6. ASPIRIN [Suspect]
     Indication: MYOCARDIAL INFARCTION
     Dosage: ORAL
     Route: 048

REACTIONS (8)
  - CONTUSION [None]
  - BUNDLE BRANCH BLOCK RIGHT [None]
  - HYPOTENSION [None]
  - TACHYCARDIA [None]
  - HAEMORRHAGE SUBCUTANEOUS [None]
  - BACK PAIN [None]
  - RETROPERITONEAL HAEMORRHAGE [None]
  - HAEMOGLOBIN DECREASED [None]
